FAERS Safety Report 4887667-9 (Version None)
Quarter: 2006Q1

REPORT INFORMATION
  Report Type: 
  Country: None (occurrence: None)
  Receive Date: 20060117
  Receipt Date: 20051201
  Transmission Date: 20060701
  Serious: Yes (Other)
  Sender: FDA-Public Use
  Company Number: 2006BH000240

PATIENT
  Age: 82 Year
  Sex: Male

DRUGS (4)
  1. HUMAN ALBUMIN GRIFOLS 20% [Suspect]
     Indication: BRONCHITIS CHRONIC
     Dosage: 10 GM;3X A DAY;IV
     Route: 042
     Dates: start: 20051120, end: 20051124
  2. MONTELUKAST [Concomitant]
  3. NICERGOLINE [Concomitant]
  4. CEFTIOFUR SODIUM [Concomitant]

REACTIONS (6)
  - BLOOD CHLORIDE DECREASED [None]
  - BLOOD SODIUM DECREASED [None]
  - DYSPHORIA [None]
  - HAEMOLYTIC ANAEMIA [None]
  - PLATELET COUNT DECREASED [None]
  - WHITE BLOOD CELL COUNT INCREASED [None]
